FAERS Safety Report 9187853 (Version 1)
Quarter: 2013Q1

REPORT INFORMATION
  Report Type: Spontaneous
  Country: US (occurrence: US)
  Receive Date: 20130325
  Receipt Date: 20130325
  Transmission Date: 20140127
  Serious: No
  Sender: FDA-Public Use
  Company Number: US-MYLANLABS-2012S1012878

PATIENT
  Age: 37 Year
  Sex: Female
  Weight: 47.63 kg

DRUGS (2)
  1. FENTANYL TRANSDERMAL SYSTEM [Suspect]
     Indication: PAIN
     Dosage: Q72HR
     Route: 062
     Dates: start: 201201
  2. ANTIEMETICS AND ANTINAUSEANTS [Concomitant]
     Indication: NAUSEA

REACTIONS (3)
  - Drug effect decreased [Recovered/Resolved]
  - Pain [Recovered/Resolved]
  - Drug withdrawal syndrome [Recovered/Resolved]
